FAERS Safety Report 17641009 (Version 2)
Quarter: 2022Q1

REPORT INFORMATION
  Report Type: Spontaneous
  Country: CA (occurrence: CA)
  Receive Date: 20200407
  Receipt Date: 20220208
  Transmission Date: 20220423
  Serious: Yes (Hospitalization)
  Sender: FDA-Public Use
  Company Number: CA-NAPPMUNDI-CAN-2020-0010765

PATIENT
  Age: 71 Year
  Sex: Female

DRUGS (62)
  1. MORPHINE SULFATE [Suspect]
     Active Substance: MORPHINE SULFATE
     Indication: Fibromyalgia
     Dosage: 10 MG, UNK
     Route: 065
  2. ACEBUTOLOL [Suspect]
     Active Substance: ACEBUTOLOL
     Indication: Coronary artery disease
     Dosage: 200 MG, DAILY (2 EVERY 1 DAYS)
     Route: 065
  3. ACEBUTOLOL [Suspect]
     Active Substance: ACEBUTOLOL
     Dosage: 200 MG, BID
     Route: 065
  4. AMITRIPTYLINE [Suspect]
     Active Substance: AMITRIPTYLINE
     Indication: Insomnia
     Dosage: 75 MG, DAILY (1 EVERY 1 DAYS)
     Route: 065
  5. AMLODIPINE BESYLATE [Suspect]
     Active Substance: AMLODIPINE BESYLATE
     Indication: Coronary artery disease
     Dosage: 5 MG, DAILY (1 EVERY 1 DAYS)
     Route: 065
  6. AMLODIPINE BESYLATE [Suspect]
     Active Substance: AMLODIPINE BESYLATE
     Dosage: 5 MG, DAILY (1 EVERY 1 DAYS)
     Route: 065
  7. CARBAMAZEPINE [Suspect]
     Active Substance: CARBAMAZEPINE
     Indication: Seizure
     Dosage: 200 MG, DAILY (2 EVERY 1 DAYS)
     Route: 065
  8. CYCLOBENZAPRINE [Suspect]
     Active Substance: CYCLOBENZAPRINE
     Indication: Fibromyalgia
     Dosage: 5 MG, DAILY (1 EVERY 1 DAYS)
     Route: 065
  9. CYCLOBENZAPRINE [Suspect]
     Active Substance: CYCLOBENZAPRINE
     Dosage: 5 MG, DAILY (1 EVERY 1 DAYS)
     Route: 065
  10. DILTIAZEM [Suspect]
     Active Substance: DILTIAZEM
     Indication: Coronary artery disease
     Dosage: 360 MG, DAILY (1 EVERY 1 DAYS)
     Route: 065
  11. FUROSEMIDE [Suspect]
     Active Substance: FUROSEMIDE
     Indication: Oedema
     Dosage: 40 MG, DAILY (1 EVERY 1 DAYS)
     Route: 065
  12. NITROGLYCERIN [Suspect]
     Active Substance: NITROGLYCERIN
     Indication: Coronary artery disease
     Dosage: UNK
     Route: 042
  13. OXAZEPAM [Suspect]
     Active Substance: OXAZEPAM
     Indication: Insomnia
     Dosage: 15 MG, DAILY (1 EVERY 1 DAYS)
     Route: 065
  14. QUINAPRIL HYDROCHLORIDE [Suspect]
     Active Substance: QUINAPRIL HYDROCHLORIDE
     Indication: Coronary artery disease
     Dosage: 40 MG, DAILY (1 EVERY 1 DAYS)
     Route: 065
  15. ACETAMINOPHEN [Concomitant]
     Active Substance: ACETAMINOPHEN
     Indication: Fibromyalgia
     Dosage: 650 MG, UNK
  16. ACETAMINOPHEN [Concomitant]
     Active Substance: ACETAMINOPHEN
     Dosage: UNK
     Route: 065
  17. ASCORBIC ACID W/VACCINIUM MACROCARPON [Concomitant]
     Indication: Bladder ablation
     Dosage: 500 MG, UNK
  18. ASCORBIC ACID W/VACCINIUM MACROCARPON [Concomitant]
     Dosage: UNK
     Route: 065
  19. BISACODYL [Concomitant]
     Active Substance: BISACODYL
     Indication: Constipation
     Dosage: UNK
  20. BISACODYL [Concomitant]
     Active Substance: BISACODYL
     Route: 065
  21. DIPYRIDAMOLE [Concomitant]
     Active Substance: DIPYRIDAMOLE
     Indication: Cerebrovascular accident
     Dosage: 200 MG, DAILY (2 EVERY 1 DAYS)
  22. DIPYRIDAMOLE [Concomitant]
     Active Substance: DIPYRIDAMOLE
     Dosage: 200 MG, BID
  23. DIPYRIDAMOLE [Concomitant]
     Active Substance: DIPYRIDAMOLE
     Dosage: UNK
     Route: 065
  24. GALANTAMINE [Concomitant]
     Active Substance: GALANTAMINE
     Indication: Dementia
     Dosage: 16 MG, DAILY (1 EVERY 1 DAYS)
  25. GALANTAMINE [Concomitant]
     Active Substance: GALANTAMINE
     Route: 065
  26. GALANTAMINE [Concomitant]
     Active Substance: GALANTAMINE
     Dosage: UNK
     Route: 065
  27. GLUCOSAMINE [Concomitant]
     Active Substance: GLUCOSAMINE
     Indication: Arthritis
     Dosage: 500 MG, DAILY (2 EVERY 1 DAYS)
  28. GLUCOSAMINE [Concomitant]
     Active Substance: GLUCOSAMINE
     Dosage: 500 MG, BID
     Route: 065
  29. GLUCOSAMINE [Concomitant]
     Active Substance: GLUCOSAMINE
     Dosage: UNK
     Route: 065
  30. GLYCERIN [Concomitant]
     Active Substance: GLYCERIN
     Indication: Constipation
     Dosage: UNK
  31. GLYCERIN [Concomitant]
     Active Substance: GLYCERIN
     Route: 065
  32. LACTULOSE [Concomitant]
     Active Substance: LACTULOSE
     Indication: Constipation
     Dosage: 15 ML, DAILY (1 EVERY 1 DAYS)
  33. LACTULOSE [Concomitant]
     Active Substance: LACTULOSE
     Route: 065
  34. LACTULOSE [Concomitant]
     Active Substance: LACTULOSE
     Dosage: UNK
     Route: 065
  35. LEVOFLOXACIN [Concomitant]
     Active Substance: LEVOFLOXACIN
     Indication: Urinary tract infection
     Dosage: 250 MG, DAILY (1 EVERY 1 DAYS)
  36. LEVOFLOXACIN [Concomitant]
     Active Substance: LEVOFLOXACIN
     Route: 065
  37. LEVOFLOXACIN [Concomitant]
     Active Substance: LEVOFLOXACIN
     Dosage: UNK
     Route: 065
  38. LEVOTHYROXINE [Concomitant]
     Active Substance: LEVOTHYROXINE
     Indication: Thyroid disorder
     Dosage: 0.088 MG, DAILY (1 EVERY 1 DAYS)
  39. LEVOTHYROXINE [Concomitant]
     Active Substance: LEVOTHYROXINE
     Route: 065
  40. LEVOTHYROXINE [Concomitant]
     Active Substance: LEVOTHYROXINE
     Dosage: UNK
     Route: 065
  41. MAGNESIUM HYDROXIDE [Concomitant]
     Active Substance: MAGNESIUM HYDROXIDE
     Indication: Constipation
     Dosage: 311 MG, UNK
  42. MAGNESIUM HYDROXIDE [Concomitant]
     Active Substance: MAGNESIUM HYDROXIDE
     Route: 065
  43. MAGNESIUM HYDROXIDE [Concomitant]
     Active Substance: MAGNESIUM HYDROXIDE
     Dosage: UNK
     Route: 065
  44. OMEPRAZOLE [Concomitant]
     Active Substance: OMEPRAZOLE
     Indication: Duodenal ulcer
     Dosage: 20 MG, DAILY (1 EVERY 1 DAYS)
  45. OMEPRAZOLE [Concomitant]
     Active Substance: OMEPRAZOLE
     Route: 065
  46. OMEPRAZOLE [Concomitant]
     Active Substance: OMEPRAZOLE
     Dosage: UNK
     Route: 065
  47. PHOSPHORIC ACID [Concomitant]
     Active Substance: PHOSPHORIC ACID
     Indication: Constipation
     Dosage: UNK
  48. PHOSPHORIC ACID [Concomitant]
     Active Substance: PHOSPHORIC ACID
     Route: 065
  49. POTASSIUM SORBATE [Concomitant]
     Active Substance: POTASSIUM SORBATE
     Indication: Constipation
     Dosage: UNK
  50. POTASSIUM SORBATE [Concomitant]
     Active Substance: POTASSIUM SORBATE
     Route: 065
  51. ROSUVASTATIN [Concomitant]
     Active Substance: ROSUVASTATIN
     Indication: Cerebrovascular accident
     Dosage: 20 MG, DAILY (2 EVERY 1 DAYS)
  52. ROSUVASTATIN [Concomitant]
     Active Substance: ROSUVASTATIN
     Dosage: 20 MG, BID
     Route: 065
  53. ROSUVASTATIN [Concomitant]
     Active Substance: ROSUVASTATIN
     Dosage: UNK
     Route: 065
  54. ALBUTEROL [Concomitant]
     Active Substance: ALBUTEROL
     Dosage: 100 MCG, UNK
  55. ALBUTEROL [Concomitant]
     Active Substance: ALBUTEROL
     Route: 065
  56. ALBUTEROL [Concomitant]
     Active Substance: ALBUTEROL
     Dosage: UNK
     Route: 065
  57. SODIUM BENZOATE [Concomitant]
     Active Substance: SODIUM BENZOATE
     Dosage: UNK
  58. SODIUM BENZOATE [Concomitant]
     Active Substance: SODIUM BENZOATE
     Route: 065
  59. TIOTROPIUM [Concomitant]
     Active Substance: TIOTROPIUM
     Dosage: 18 MCG, DAILY (1 EVERY 1 DAYS)
  60. EMETROL                            /00327401/ [Concomitant]
     Dosage: UNK
     Route: 065
  61. SPIRIVA [Concomitant]
     Active Substance: TIOTROPIUM BROMIDE MONOHYDRATE
     Dosage: 18 MCG, DAILY (1 EVERY 1 DAYS)
     Route: 065
  62. SPIRIVA [Concomitant]
     Active Substance: TIOTROPIUM BROMIDE MONOHYDRATE
     Dosage: UNK
     Route: 065

REACTIONS (2)
  - Bladder disorder [Recovered/Resolved]
  - Orthostatic hypotension [Recovered/Resolved]
